FAERS Safety Report 9066546 (Version 1)
Quarter: 2013Q1

REPORT INFORMATION
  Report Type: Spontaneous
  Country: GR (occurrence: GR)
  Receive Date: 20130214
  Receipt Date: 20130214
  Transmission Date: 20140127
  Serious: Yes (Other)
  Sender: FDA-Public Use
  Company Number: GR-PFIZER INC-2013058705

PATIENT
  Sex: Male

DRUGS (3)
  1. LIPITOR [Suspect]
     Indication: HYPERLIPIDAEMIA
     Dosage: UNK, 1X/DAY (AT NIGHT)
     Route: 048
  2. T4 [Concomitant]
     Indication: HYPOTHYROIDISM
     Dosage: 88 MICROGRAMS PER DAY
  3. OMNIC TOCAS [Concomitant]
     Indication: BENIGN PROSTATIC HYPERPLASIA
     Dosage: UNK
     Route: 048

REACTIONS (1)
  - Back disorder [Unknown]
